FAERS Safety Report 4567387-0 (Version None)
Quarter: 2005Q1

REPORT INFORMATION
  Report Type: 
  Country: None (occurrence: None)
  Receive Date: 20050127
  Receipt Date: 20050113
  Transmission Date: 20050727
  Serious: Yes (Other)
  Sender: FDA-Public Use
  Company Number: 2005-DE-00158GD

PATIENT
  Age: 62 Year
  Sex: Male

DRUGS (3)
  1. IPRATROPIUM BROMIDE [Suspect]
  2. TIAPRIDE (TIAPRIDE0 [Suspect]
  3. METOCLOPRAMIDE (METOCLOPRAMIDE0 [Concomitant]

REACTIONS (3)
  - DECREASED ACTIVITY [None]
  - DELIRIUM [None]
  - LUNG INFECTION [None]
